FAERS Safety Report 19943870 (Version 2)
Quarter: 2021Q4

REPORT INFORMATION
  Report Type: Other
  Country: RU (occurrence: RU)
  Receive Date: 20211011
  Receipt Date: 20211019
  Transmission Date: 20220303
  Serious: Yes (Hospitalization)
  Sender: FDA-Public Use
  Company Number: RU-MERCK HEALTHCARE KGAA-9269465

PATIENT
  Age: 63 Year
  Sex: Male
  Weight: 90 kg

DRUGS (9)
  1. METFORMIN [Suspect]
     Active Substance: METFORMIN HYDROCHLORIDE
     Indication: Type 2 diabetes mellitus
  2. GLICLAZIDE [Concomitant]
     Active Substance: GLICLAZIDE
     Indication: Type 2 diabetes mellitus
  3. BISOPROLOL [Concomitant]
     Active Substance: BISOPROLOL
     Indication: Product used for unknown indication
  4. ATORVASTATIN [Concomitant]
     Active Substance: ATORVASTATIN
     Indication: Product used for unknown indication
  5. ASPIRIN [Concomitant]
     Active Substance: ASPIRIN
     Indication: Product used for unknown indication
  6. SPIRONOLACTONE [Concomitant]
     Active Substance: SPIRONOLACTONE
     Indication: Product used for unknown indication
  7. DIGOXIN [Concomitant]
     Active Substance: DIGOXIN
     Indication: Product used for unknown indication
     Dosage: 1 TIME PER DAY IN THE MORNING 5 DAYS A WEEK, 2 DAYS OFF;
  8. URSODIOL [Concomitant]
     Active Substance: URSODIOL
     Indication: Product used for unknown indication
  9. LOSARTAN [Concomitant]
     Active Substance: LOSARTAN
     Indication: Product used for unknown indication

REACTIONS (7)
  - Cardiac failure chronic [Unknown]
  - Congestive hepatopathy [Recovering/Resolving]
  - Pneumonia [Unknown]
  - Bundle branch block left [Unknown]
  - Cholecystitis chronic [Unknown]
  - Pyelonephritis chronic [Unknown]
  - Blood glucose increased [Unknown]

NARRATIVE: CASE EVENT DATE: 20200101
